FAERS Safety Report 6041946-0 (Version None)
Quarter: 2009Q1

REPORT INFORMATION
  Report Type: 
  Country: None (occurrence: None)
  Receive Date: 20090116
  Receipt Date: 20090106
  Transmission Date: 20090719
  Serious: Yes (Other)
  Sender: FDA-Public Use
  Company Number: SI-ROCHE-606646

PATIENT
  Age: 64 Year
  Sex: Male

DRUGS (4)
  1. MIRCERA [Suspect]
     Route: 042
     Dates: start: 20080801
  2. MIRCERA [Suspect]
     Dosage: DOSE INCREASED
     Route: 042
     Dates: start: 20081001
  3. MIRCERA [Suspect]
     Dosage: DOSE DECREASED
     Route: 042
     Dates: start: 20081101
  4. MIRCERA [Suspect]
     Dosage: DOSE DECREASED
     Route: 042
     Dates: start: 20081201

REACTIONS (2)
  - GASTROINTESTINAL TRACT ADENOMA [None]
  - HAEMOGLOBIN DECREASED [None]
